FAERS Safety Report 7492443-7 (Version None)
Quarter: 2011Q2

REPORT INFORMATION
  Report Type: 
  Country: None (occurrence: None)
  Receive Date: 20110519
  Receipt Date: 20110516
  Transmission Date: 20111010
  Serious: Yes (Hospitalization)
  Sender: FDA-Public Use
  Company Number: HU-AMGEN-HUNSP2011025329

PATIENT
  Sex: Female
  Weight: 110 kg

DRUGS (5)
  1. DEXAMETHASONE [Concomitant]
  2. IMMUNOGLOBULINS [Concomitant]
  3. CORTICOSTEROIDS [Concomitant]
  4. NPLATE [Suspect]
     Indication: IDIOPATHIC THROMBOCYTOPENIC PURPURA
     Dosage: UNK
     Dates: start: 20101101
  5. AZATHIOPRINE [Concomitant]

REACTIONS (1)
  - DEEP VEIN THROMBOSIS [None]
